FAERS Safety Report 23050277 (Version 3)
Quarter: 2023Q4

REPORT INFORMATION
  Report Type: Spontaneous
  Country: US (occurrence: US)
  Receive Date: 20231010
  Receipt Date: 20231122
  Transmission Date: 20240110
  Serious: No
  Sender: FDA-Public Use
  Company Number: US-Blueprint Medicines Corporation-1554

PATIENT
  Age: 63 Year
  Sex: Female

DRUGS (2)
  1. AYVAKIT [Suspect]
     Active Substance: AVAPRITINIB
     Indication: Systemic mastocytosis
     Route: 048
     Dates: start: 20230915
  2. AYVAKIT [Suspect]
     Active Substance: AVAPRITINIB
     Indication: Indolent systemic mastocytosis
     Route: 048
     Dates: start: 20230922

REACTIONS (4)
  - Psychomotor hyperactivity [Recovered/Resolved]
  - Feeling abnormal [Recovered/Resolved]
  - Dizziness [Recovered/Resolved]
  - Insomnia [Recovered/Resolved]

NARRATIVE: CASE EVENT DATE: 20230922
